FAERS Safety Report 10415187 (Version 1)
Quarter: 2014Q3

REPORT INFORMATION
  Report Type: Spontaneous
  Country: US (occurrence: None)
  Receive Date: 20140827
  Receipt Date: 20140827
  Transmission Date: 20150326
  Serious: No
  Sender: FDA-Public Use
  Company Number: None

PATIENT
  Age: 58 Year
  Sex: Male

DRUGS (1)
  1. CAPECITABINE [Suspect]
     Active Substance: CAPECITABINE
     Indication: RECTAL CANCER
     Route: 048
     Dates: start: 20140313

REACTIONS (6)
  - Nausea [None]
  - Neuropathy peripheral [None]
  - Fatigue [None]
  - Drug ineffective [None]
  - Decreased appetite [None]
  - Diarrhoea [None]
